FAERS Safety Report 19599768 (Version 1)
Quarter: 2021Q3

REPORT INFORMATION
  Report Type: Spontaneous
  Country: US (occurrence: US)
  Receive Date: 20210723
  Receipt Date: 20210723
  Transmission Date: 20211014
  Serious: Yes (Hospitalization)
  Sender: FDA-Public Use
  Company Number: None

PATIENT
  Age: 56 Year
  Sex: Female
  Weight: 104.3 kg

DRUGS (3)
  1. DILTIAZEM. [Suspect]
     Active Substance: DILTIAZEM
     Indication: ATRIAL FIBRILLATION
     Dosage: ?          OTHER FREQUENCY:ONCE;?
     Route: 042
  2. DILTIAZEM. [Suspect]
     Active Substance: DILTIAZEM
     Indication: DIZZINESS
     Dosage: ?          OTHER FREQUENCY:ONCE;?
     Route: 042
  3. DILTIAZEM. [Suspect]
     Active Substance: DILTIAZEM
     Indication: PALPITATIONS
     Dosage: ?          OTHER FREQUENCY:ONCE;?
     Route: 042

REACTIONS (2)
  - Bradycardia [None]
  - Hypotension [None]

NARRATIVE: CASE EVENT DATE: 20201219
